FAERS Safety Report 4806747-7 (Version None)
Quarter: 2005Q4

REPORT INFORMATION
  Report Type: 
  Country: None (occurrence: None)
  Receive Date: 20051019
  Receipt Date: 20050707
  Transmission Date: 20060501
  Serious: Yes (Other)
  Sender: FDA-Public Use
  Company Number: EWC051046249

PATIENT
  Age: 46 Year
  Sex: Female
  Weight: 53 kg

DRUGS (6)
  1. GEMCITABINE HYDROCHLORIDE-IV (GEMCITABINE) [Suspect]
     Indication: NON-SMALL CELL LUNG CANCER
     Dosage: 1600 MG/8 UNKNOWN
     Dates: start: 20040908, end: 20041231
  2. CISPLATIN [Suspect]
     Indication: NON-SMALL CELL LUNG CANCER
     Dosage: 110 MG/4 UNKNOWN
     Dates: start: 20040908, end: 20041224
  3. GRANISETRON [Concomitant]
  4. DEXAMETHASONE [Concomitant]
  5. METOCLOPRAMIDE [Concomitant]
  6. OXYCODONE [Concomitant]

REACTIONS (8)
  - ALANINE AMINOTRANSFERASE INCREASED [None]
  - ASPARTATE AMINOTRANSFERASE INCREASED [None]
  - CONSTIPATION [None]
  - DRUG INEFFECTIVE [None]
  - GRANULOCYTOPENIA [None]
  - HAEMATOTOXICITY [None]
  - NAUSEA [None]
  - VOMITING [None]
